FAERS Safety Report 9465142 (Version 1)
Quarter: 2013Q3

REPORT INFORMATION
  Report Type: Spontaneous
  Country: US (occurrence: US)
  Receive Date: 20130819
  Receipt Date: 20130819
  Transmission Date: 20140515
  Serious: Yes (Death)
  Sender: FDA-Public Use
  Company Number: US-TMC-CABO-13003126

PATIENT
  Sex: Male

DRUGS (2)
  1. COMETRIQ [Suspect]
     Indication: BRAIN NEOPLASM MALIGNANT
     Dosage: 140 MG, QD
     Route: 048
     Dates: start: 20130720, end: 20130726
  2. PREDNISONE [Concomitant]

REACTIONS (1)
  - Necrotising fasciitis [Fatal]
